FAERS Safety Report 7657482-1 (Version None)
Quarter: 2011Q3

REPORT INFORMATION
  Report Type: 
  Country: None (occurrence: None)
  Receive Date: 20110804
  Receipt Date: 20110803
  Transmission Date: 20111222
  Serious: Yes (Other)
  Sender: FDA-Public Use
  Company Number: US-PFIZER INC-2011127728

PATIENT
  Sex: Female
  Weight: 56.236 kg

DRUGS (12)
  1. CHANTIX [Suspect]
     Indication: SMOKING CESSATION THERAPY
     Dosage: 0.5 MG, UNK
     Route: 048
     Dates: start: 20110228, end: 20110101
  2. BUTORPHANOL [Concomitant]
     Indication: MIGRAINE
     Dosage: 10 MG, UNK
     Route: 045
  3. NEXIUM [Concomitant]
     Dosage: UNK
  4. MAXALT [Concomitant]
     Dosage: UNK
  5. VITAMIN D [Concomitant]
     Dosage: 50000 UNITS, ONCE A WEEK
  6. MULTI-VITAMINS [Concomitant]
     Dosage: UNK
  7. ALENDRONATE SODIUM [Concomitant]
     Indication: BONE DISORDER
     Dosage: UNK
  8. CHANTIX [Suspect]
     Dosage: UNK
     Route: 048
     Dates: start: 20110101, end: 20110505
  9. MAXALT [Concomitant]
     Indication: MIGRAINE
     Dosage: 10 MG, UNK
  10. FOLIC ACID [Concomitant]
     Dosage: UNK
  11. VITAMIN D [Concomitant]
     Dosage: UNK
  12. PROMETHAZINE [Suspect]
     Indication: NAUSEA
     Dosage: UNK
     Dates: start: 20110101

REACTIONS (3)
  - HEART RATE INCREASED [None]
  - BLOOD PRESSURE INCREASED [None]
  - CHEST PAIN [None]
